FAERS Safety Report 7513084-9 (Version None)
Quarter: 2011Q2

REPORT INFORMATION
  Report Type: 
  Country: None (occurrence: None)
  Receive Date: 20110531
  Receipt Date: 20110525
  Transmission Date: 20111010
  Serious: Yes (Other)
  Sender: FDA-Public Use
  Company Number: US-PFIZER INC-2011113447

PATIENT
  Sex: Female
  Weight: 65.76 kg

DRUGS (1)
  1. CLINDAMYCIN HCL [Suspect]
     Indication: DENTAL CLEANING
     Dosage: 800 MG, DAILY
     Route: 048
     Dates: start: 20090101, end: 20090101

REACTIONS (1)
  - CLOSTRIDIUM DIFFICILE COLITIS [None]
